FAERS Safety Report 9002646 (Version 1)
Quarter: 2013Q1

REPORT INFORMATION
  Report Type: Spontaneous
  Country: US (occurrence: US)
  Receive Date: 20130107
  Receipt Date: 20130107
  Transmission Date: 20140127
  Serious: Yes (Death)
  Sender: FDA-Public Use
  Company Number: US-PFIZER INC-2013003440

PATIENT
  Age: 24 Year
  Sex: Female

DRUGS (4)
  1. IBUPROFEN [Suspect]
  2. ACETAMINOPHEN W/HYDROCODONE BITARTRATE [Suspect]
  3. ETHANOL [Suspect]
  4. CARISOPRODOL [Suspect]

REACTIONS (5)
  - Completed suicide [Fatal]
  - Cardiac arrest [Fatal]
  - Respiratory arrest [Fatal]
  - Intentional drug misuse [None]
  - Toxicity to various agents [None]
